FAERS Safety Report 7491889-0 (Version None)
Quarter: 2011Q2

REPORT INFORMATION
  Report Type: 
  Country: None (occurrence: None)
  Receive Date: 20110518
  Receipt Date: 20110518
  Transmission Date: 20111010
  Serious: No
  Sender: FDA-Public Use
  Company Number: None

PATIENT
  Sex: Male
  Weight: 75 kg

DRUGS (6)
  1. ETOPOSIDE [Suspect]
     Dosage: 558 MG
  2. ZOFRAN [Concomitant]
  3. IMODIUM [Concomitant]
  4. ADVAIR DISKUS 100/50 [Concomitant]
  5. CISPLATIN [Suspect]
     Dosage: 99 MG
  6. COMPAZINE [Concomitant]

REACTIONS (1)
  - HAEMOGLOBIN DECREASED [None]
